FAERS Safety Report 21652040 (Version 1)
Quarter: 2022Q4

REPORT INFORMATION
  Report Type: Spontaneous
  Country: US (occurrence: US)
  Receive Date: 20221128
  Receipt Date: 20221128
  Transmission Date: 20230113
  Serious: Yes (Hospitalization, Other)
  Sender: FDA-Public Use
  Company Number: US-BRISTOL-MYERS SQUIBB COMPANY-2022-142941

PATIENT
  Age: 78 Year
  Sex: Female

DRUGS (1)
  1. ELIQUIS [Suspect]
     Active Substance: APIXABAN
     Indication: Product used for unknown indication
     Route: 048

REACTIONS (21)
  - Myocardial infarction [Unknown]
  - Pneumonia [Unknown]
  - Blood disorder [Unknown]
  - Weight decreased [Unknown]
  - COVID-19 [Unknown]
  - Cardiac disorder [Unknown]
  - Ulcer haemorrhage [Unknown]
  - Iron deficiency [Unknown]
  - Incontinence [Unknown]
  - Speech disorder [Unknown]
  - Sciatica [Unknown]
  - Lung disorder [Unknown]
  - Dysstasia [Unknown]
  - Asthenia [Unknown]
  - Tremor [Recovered/Resolved]
  - Head injury [Unknown]
  - Fall [Unknown]
  - Joint injury [Unknown]
  - Skin laceration [Unknown]
  - Road traffic accident [Unknown]
  - Pain [Unknown]

NARRATIVE: CASE EVENT DATE: 20210921
